FAERS Safety Report 22015363 (Version 1)
Quarter: 2023Q1

REPORT INFORMATION
  Report Type: Spontaneous
  Country: US (occurrence: US)
  Receive Date: 20230221
  Receipt Date: 20230221
  Transmission Date: 20230418
  Serious: Yes (Life-Threatening, Hospitalization)
  Sender: FDA-Public Use
  Company Number: US-MYLANLABS-2023M1016797

PATIENT
  Age: 24 Year
  Sex: Male

DRUGS (2)
  1. LOPERAMIDE [Suspect]
     Active Substance: LOPERAMIDE
     Indication: Product used for unknown indication
     Dosage: 300 MILLIGRAM, QD
     Route: 048
  2. MAGNESIUM SULFATE [Suspect]
     Active Substance: MAGNESIUM SULFATE
     Indication: Ventricular tachycardia
     Dosage: 4 GRAM; INTRAVENOUS (NOT SPECIFIED)
     Route: 042

REACTIONS (17)
  - Drug abuse [Unknown]
  - Intentional overdose [Unknown]
  - Unresponsive to stimuli [Unknown]
  - Loss of consciousness [Unknown]
  - Cardiotoxicity [Unknown]
  - Ventricular tachycardia [Unknown]
  - Sinus bradycardia [Unknown]
  - Electrocardiogram QT prolonged [Unknown]
  - Electrocardiogram QRS complex prolonged [Unknown]
  - Syncope [Unknown]
  - Anxiety [Unknown]
  - Chills [Unknown]
  - Diarrhoea [Unknown]
  - Piloerection [Unknown]
  - Urinary incontinence [Unknown]
  - Withdrawal syndrome [Unknown]
  - Drug ineffective [Unknown]
